FAERS Safety Report 5150693-9 (Version None)
Quarter: 2006Q4

REPORT INFORMATION
  Report Type: 
  Country: None (occurrence: None)
  Receive Date: 20061114
  Receipt Date: 20061106
  Transmission Date: 20070319
  Serious: Yes (Death)
  Sender: FDA-Public Use
  Company Number: US-KINGPHARMUSA00001-K200601405

PATIENT
  Age: 36 Year
  Sex: Female

DRUGS (2)
  1. KEMADRIN [Suspect]
     Indication: DYSTONIA
     Dosage: 2 ML, BID
     Route: 030
     Dates: start: 20060114
  2. FLUPHENAZINE DECANOATE [Concomitant]

REACTIONS (3)
  - BLOOD ALCOHOL INCREASED [None]
  - CARDIO-RESPIRATORY ARREST [None]
  - DILATATION VENTRICULAR [None]
